FAERS Safety Report 12190694 (Version 1)
Quarter: 2016Q1

REPORT INFORMATION
  Report Type: Report from Study
  Country: BR (occurrence: BR)
  Receive Date: 20160318
  Receipt Date: 20160318
  Transmission Date: 20160526
  Serious: Yes (Hospitalization, Other)
  Sender: FDA-Public Use
  Company Number: BR-GLAXOSMITHKLINE-BR2016GSK037576

PATIENT
  Age: 3 Year
  Sex: Female
  Weight: 19 kg

DRUGS (6)
  1. FLUTICASONE PROPIONATE. [Suspect]
     Active Substance: FLUTICASONE PROPIONATE
     Dosage: 4 PUFF(S), BID , 50 MCG
     Route: 055
  2. FLUTICASONE PROPIONATE. [Suspect]
     Active Substance: FLUTICASONE PROPIONATE
     Indication: ASTHMA
     Dosage: 4 PUFF(S), BID , 250 MCG
     Route: 055
     Dates: start: 2014, end: 201505
  3. FLUTICASONE PROPIONATE+SALMETEROL XINAFOATE [Suspect]
     Active Substance: FLUTICASONE PROPIONATE\SALMETEROL XINAFOATE
     Dosage: 2 PUFF(S), BID , 50/250 MCG
     Route: 055
  4. FLUTICASONE PROPIONATE+SALMETEROL XINAFOATE [Suspect]
     Active Substance: FLUTICASONE PROPIONATE\SALMETEROL XINAFOATE
     Indication: ASTHMA
     Dosage: 2 PUFF(S), BID , 25/50 MCG
     Route: 055
  5. MINILAX (SORBITOL) [Concomitant]
     Indication: PRODUCT USED FOR UNKNOWN INDICATION
     Dosage: UNK
     Dates: start: 201505, end: 201510
  6. NASONEX [Concomitant]
     Active Substance: MOMETASONE FUROATE
     Indication: PRODUCT USED FOR UNKNOWN INDICATION
     Dosage: UNK
     Dates: start: 201505, end: 201510

REACTIONS (5)
  - Drug administered to patient of inappropriate age [Unknown]
  - Drug ineffective [Unknown]
  - Overdose [Unknown]
  - Asthma [Recovered/Resolved]
  - Asthmatic crisis [Unknown]

NARRATIVE: CASE EVENT DATE: 201510
